FAERS Safety Report 20377414 (Version 1)
Quarter: 2022Q1

REPORT INFORMATION
  Report Type: Spontaneous
  Country: None (occurrence: US)
  Receive Date: 20220126
  Receipt Date: 20220126
  Transmission Date: 20220423
  Serious: No
  Sender: FDA-Public Use
  Company Number: US-Y-mAbs Therapeutics-2124284

PATIENT
  Sex: Male

DRUGS (18)
  1. DANYELZA [Suspect]
     Active Substance: NAXITAMAB-GQGK
     Indication: Neuroblastoma recurrent
     Route: 042
     Dates: start: 20211213, end: 20211217
  2. LEUKINE [Concomitant]
     Active Substance: SARGRAMOSTIM
  3. ALBUTEROL [Concomitant]
     Active Substance: ALBUTEROL
  4. SODIUM CHLORIDE [Concomitant]
     Active Substance: SODIUM CHLORIDE
     Dates: start: 20211213
  5. TYLENOL [Concomitant]
     Active Substance: ACETAMINOPHEN
     Dates: start: 20211213
  6. OXYCODONE. [Concomitant]
     Active Substance: OXYCODONE HYDROCHLORIDE
     Dates: start: 20211213
  7. GRANISETRON HYDROCHLORIDE [Concomitant]
     Active Substance: GRANISETRON HYDROCHLORIDE
     Dates: start: 20211213
  8. FAMOTIDINE [Concomitant]
     Active Substance: FAMOTIDINE
     Dates: start: 20211213
  9. LORATADINE [Concomitant]
     Active Substance: LORATADINE
     Dates: start: 20211213
  10. METHYLPREDNISOLONE [Concomitant]
     Active Substance: METHYLPREDNISOLONE
     Dates: start: 20211213
  11. GABAPENTIN [Concomitant]
     Active Substance: GABAPENTIN
     Dates: start: 20211213
  12. TORADOL [Concomitant]
     Active Substance: KETOROLAC TROMETHAMINE
     Dates: start: 20211215
  13. PRECEDEX [Concomitant]
     Active Substance: DEXMEDETOMIDINE HYDROCHLORIDE
     Dates: start: 20211215
  14. KETAMINE HYDROCHLORIDE [Concomitant]
     Active Substance: KETAMINE HYDROCHLORIDE
     Dates: start: 20211217
  15. ATROPINE [Concomitant]
     Active Substance: ATROPINE
     Dates: start: 20211217
  16. MIDAZOLAM [Concomitant]
     Active Substance: MIDAZOLAM
     Dates: start: 20211217
  17. APIXABAN [Concomitant]
     Active Substance: APIXABAN
  18. KEPPRA [Concomitant]
     Active Substance: LEVETIRACETAM

REACTIONS (3)
  - Cough [Recovered/Resolved]
  - Cough [Recovered/Resolved]
  - Cough [Recovered/Resolved]

NARRATIVE: CASE EVENT DATE: 20211214
